APPROVED DRUG PRODUCT: SYMFI
Active Ingredient: EFAVIRENZ; LAMIVUDINE; TENOFOVIR DISOPROXIL FUMARATE
Strength: 600MG;300MG;300MG
Dosage Form/Route: TABLET;ORAL
Application: N022142 | Product #001 | TE Code: AB
Applicant: MYLAN LABORATORIES LTD
Approved: Mar 22, 2018 | RLD: Yes | RS: Yes | Type: RX